FAERS Safety Report 21211413 (Version 1)
Quarter: 2022Q3

REPORT INFORMATION
  Report Type: Spontaneous
  Country: US (occurrence: None)
  Receive Date: 20220812
  Receipt Date: 20220812
  Transmission Date: 20221027
  Serious: Yes (Hospitalization)
  Sender: FDA-Public Use
  Company Number: None

PATIENT
  Age: 72 Year
  Sex: Male
  Weight: 94 kg

DRUGS (4)
  1. LOSARTAN [Suspect]
     Active Substance: LOSARTAN
     Indication: Hypertension
     Dates: start: 20220311, end: 20220601
  2. LOSARTAN [Suspect]
     Active Substance: LOSARTAN
     Indication: End stage renal disease
  3. CEPHALEXIN [Suspect]
     Active Substance: CEPHALEXIN
     Indication: Skin infection
     Dates: start: 20220527, end: 20220601
  4. CEPHALEXIN [Suspect]
     Active Substance: CEPHALEXIN
     Indication: Soft tissue infection

REACTIONS (1)
  - Angioedema [None]

NARRATIVE: CASE EVENT DATE: 20220531
